FAERS Safety Report 4409766-8 (Version None)
Quarter: 2004Q3

REPORT INFORMATION
  Report Type: 
  Country: None (occurrence: None)
  Receive Date: 20040723
  Receipt Date: 20040714
  Transmission Date: 20050211
  Serious: Yes (Other)
  Sender: FDA-Public Use
  Company Number: US-SHR-04-020947

PATIENT
  Age: 63 Year
  Sex: Male
  Weight: 85.1 kg

DRUGS (6)
  1. GM-CSF(SARGRAMOSTIM) INJECTION [Suspect]
     Indication: MYELODYSPLASTIC SYNDROME
     Dosage: 125 UG/M2/DX14DQ28D, SUBCUTANEOUS
     Route: 058
     Dates: start: 20040113, end: 20040330
  2. BRYOSTATIN 1 (BRYOSTATIN 1) [Suspect]
     Indication: MYELODYSPLASTIC SYNDROME
     Dosage: 18 UG/M2/DX14DQ28DAYS, INTRAVENOUS; SEE IMAGE
     Route: 042
     Dates: start: 20040113, end: 20040301
  3. BRYOSTATIN 1 (BRYOSTATIN 1) [Suspect]
     Indication: MYELODYSPLASTIC SYNDROME
     Dosage: 18 UG/M2/DX14DQ28DAYS, INTRAVENOUS; SEE IMAGE
     Route: 042
     Dates: start: 20040317, end: 20040330
  4. LIPITOR [Concomitant]
  5. QUININE [Concomitant]
  6. CIPROFLOXACIN [Concomitant]

REACTIONS (13)
  - ABDOMINAL DISTENSION [None]
  - ARTHRALGIA [None]
  - BLADDER DISORDER [None]
  - DEPRESSION [None]
  - DIARRHOEA [None]
  - FATIGUE [None]
  - HEADACHE [None]
  - HYPERURICAEMIA [None]
  - INFLUENZA LIKE ILLNESS [None]
  - INJECTION SITE HAEMORRHAGE [None]
  - LEUKOPENIA [None]
  - MYOSITIS [None]
  - NEUTROPENIA [None]
